FAERS Safety Report 19119528 (Version 1)
Quarter: 2021Q2

REPORT INFORMATION
  Report Type: Spontaneous
  Country: US (occurrence: US)
  Receive Date: 20210412
  Receipt Date: 20210412
  Transmission Date: 20210717
  Serious: No
  Sender: FDA-Public Use
  Company Number: US-ORGANON-O2104USA000584

PATIENT
  Age: 18 Year
  Sex: Female
  Weight: 89.4 kg

DRUGS (2)
  1. NEXPLANON [Suspect]
     Active Substance: ETONOGESTREL
     Dosage: 1 ROD, 68MG, LEFT UPPER ARM
     Route: 059
     Dates: start: 20201008, end: 20210406
  2. NEXPLANON [Suspect]
     Active Substance: ETONOGESTREL
     Dosage: NEW IMPLANT
     Route: 059
     Dates: start: 20210406

REACTIONS (6)
  - Menstrual disorder [Unknown]
  - Device kink [Recovered/Resolved]
  - Road traffic accident [Unknown]
  - Device breakage [Recovered/Resolved]
  - Complication of device removal [Recovered/Resolved]
  - Hypomenorrhoea [Unknown]

NARRATIVE: CASE EVENT DATE: 2021
